FAERS Safety Report 20462632 (Version 1)
Quarter: 2022Q1

REPORT INFORMATION
  Report Type: Spontaneous
  Country: US (occurrence: None)
  Receive Date: 20220211
  Receipt Date: 20220211
  Transmission Date: 20220423
  Serious: Yes (Other)
  Sender: FDA-Public Use
  Company Number: 2022A064510

PATIENT
  Age: 80 Year
  Sex: Female
  Weight: 61.2 kg

DRUGS (6)
  1. FASLODEX [Suspect]
     Active Substance: FULVESTRANT
     Route: 030
     Dates: end: 20220203
  2. IBRANCE [Suspect]
     Active Substance: PALBOCICLIB
     Indication: Breast cancer metastatic
     Dosage: 125.0MG UNKNOWN
     Route: 048
     Dates: end: 20220203
  3. METFORMIN [Concomitant]
     Active Substance: METFORMIN HYDROCHLORIDE
     Indication: Prophylaxis
     Route: 065
  4. AROMASIN [Concomitant]
     Active Substance: EXEMESTANE
     Route: 065
  5. PYRIDOXINE [Concomitant]
     Active Substance: PYRIDOXINE
     Dosage: 100.0MG UNKNOWN
     Route: 065
  6. VITAMIN B12 [Concomitant]
     Active Substance: CYANOCOBALAMIN
     Route: 065

REACTIONS (15)
  - Metastases to bone [Unknown]
  - Neuropathy peripheral [Not Recovered/Not Resolved]
  - Sciatica [Unknown]
  - Body height decreased [Unknown]
  - Hypoaesthesia [Not Recovered/Not Resolved]
  - Limb discomfort [Unknown]
  - White blood cell count abnormal [Unknown]
  - Red blood cell count abnormal [Unknown]
  - Discomfort [Not Recovered/Not Resolved]
  - Restless legs syndrome [Unknown]
  - Osteopenia [Unknown]
  - Insomnia [Not Recovered/Not Resolved]
  - Decreased activity [Unknown]
  - Paraesthesia [Not Recovered/Not Resolved]
  - Pain in extremity [Not Recovered/Not Resolved]
